FAERS Safety Report 5705447-9 (Version None)
Quarter: 2008Q2

REPORT INFORMATION
  Report Type: 
  Country: None (occurrence: None)
  Receive Date: 20080410
  Receipt Date: 20080401
  Transmission Date: 20081010
  Serious: Yes (Other)
  Sender: FDA-Public Use
  Company Number: 2008AP000747

PATIENT
  Age: 41 Year
  Sex: Female

DRUGS (4)
  1. CARBAMAZEPINE  (CARBAMAZEPINE) [Suspect]
  2. HALOPERIDOL [Concomitant]
  3. LORAZEPAM [Concomitant]
  4. BENZTROPEINE (BENZTROPEINE) [Concomitant]

REACTIONS (13)
  - ABULIA [None]
  - BLUNTED AFFECT [None]
  - BRADYCARDIA [None]
  - DRUG INEFFECTIVE [None]
  - ENCEPHALITIS [None]
  - HYPERSEXUALITY [None]
  - LEUKOPENIA [None]
  - NEUROLEPTIC MALIGNANT SYNDROME [None]
  - PNEUMONIA ASPIRATION [None]
  - PULMONARY EMBOLISM [None]
  - RETROGRADE AMNESIA [None]
  - SPEECH DISORDER [None]
  - TOOTH FRACTURE [None]
